FAERS Safety Report 9137675 (Version 1)
Quarter: 2013Q1

REPORT INFORMATION
  Report Type: Spontaneous
  Country: FR (occurrence: FR)
  Receive Date: 20130304
  Receipt Date: 20130304
  Transmission Date: 20140127
  Serious: Yes (Hospitalization)
  Sender: FDA-Public Use
  Company Number: FR-ASTRAZENECA-2013SE12163

PATIENT
  Age: 16394 Day
  Sex: Female

DRUGS (24)
  1. INEXIUM [Suspect]
     Route: 048
     Dates: start: 20130117, end: 20130129
  2. TRIFLUCAN [Suspect]
     Dosage: 50MG / 5 ML
     Route: 048
     Dates: start: 20130125, end: 20130125
  3. TRIFLUCAN [Suspect]
     Dosage: 50MG / 5 ML
     Route: 048
     Dates: start: 20130127, end: 20130201
  4. BACTRIM [Suspect]
     Route: 048
     Dates: start: 20130114, end: 20130131
  5. RIFATER [Suspect]
     Route: 048
     Dates: start: 20130115, end: 20130201
  6. ZOPHREN [Suspect]
     Route: 060
     Dates: start: 20130126, end: 20130130
  7. LOVENOX [Suspect]
     Route: 058
     Dates: start: 20130116, end: 20130128
  8. TIORFAN [Suspect]
     Route: 048
     Dates: start: 20130112, end: 20130128
  9. SMECTA [Suspect]
     Route: 048
     Dates: start: 20130113, end: 20130128
  10. PARACETAMOL [Concomitant]
     Dates: start: 20130110
  11. FLAGYL [Concomitant]
     Dates: start: 20130111, end: 20130124
  12. ACUPAN [Concomitant]
     Dates: start: 20130112
  13. KALEORID [Concomitant]
     Dates: start: 20130114
  14. MAG 2 [Concomitant]
     Dates: start: 20130114
  15. NOVONORM [Concomitant]
     Dates: start: 20130114, end: 20130115
  16. PRIMPERAN [Concomitant]
     Dates: start: 20130114, end: 20130116
  17. ROCEPHINE [Concomitant]
     Dosage: ONCE/SINGLE ADMINISTRATION
     Dates: start: 20130114, end: 20130114
  18. ETHAMBUTOL [Concomitant]
     Dates: start: 20130115
  19. PHOSPHORE [Concomitant]
     Dates: start: 20130115
  20. GAVISCON [Concomitant]
     Dates: start: 20130115
  21. MOTILIUM [Concomitant]
     Dates: start: 20130120
  22. UVEDOSE [Concomitant]
     Dosage: ONCE/SINGLE ADMINISTRATION
     Dates: start: 20130115, end: 20130115
  23. IMOVANE [Concomitant]
     Dosage: ONCE/SINGLE ADMINISTRATION
     Dates: start: 20130119, end: 20130119
  24. VOGALENE [Concomitant]
     Dosage: ONCE/SINGLE ADMINISTRATION
     Dates: start: 20130125, end: 20130125

REACTIONS (1)
  - Acute generalised exanthematous pustulosis [Recovered/Resolved]
